FAERS Safety Report 5799392-0 (Version None)
Quarter: 2008Q3

REPORT INFORMATION
  Report Type: 
  Country: None (occurrence: None)
  Receive Date: 20080703
  Receipt Date: 20080622
  Transmission Date: 20090109
  Serious: Yes (Other)
  Sender: FDA-Public Use
  Company Number: US-PFIZER INC-2008054087

PATIENT
  Sex: Female
  Weight: 49.4 kg

DRUGS (5)
  1. CHANTIX [Suspect]
     Indication: SMOKING CESSATION THERAPY
  2. CLONAZEPAM [Concomitant]
  3. EFFEXOR [Concomitant]
  4. GEODON [Concomitant]
  5. ADDERALL 10 [Concomitant]

REACTIONS (1)
  - OBSESSIVE THOUGHTS [None]
